FAERS Safety Report 12388015 (Version 2)
Quarter: 2016Q2

REPORT INFORMATION
  Report Type: Spontaneous
  Country: US (occurrence: US)
  Receive Date: 20160520
  Receipt Date: 20160603
  Transmission Date: 20160815
  Serious: Yes (Death, Other)
  Sender: FDA-Public Use
  Company Number: US-AMGEN-USASP2016063581

PATIENT
  Age: 21 Year
  Sex: Female

DRUGS (1)
  1. ENBREL [Suspect]
     Active Substance: ETANERCEPT
     Indication: RHEUMATOID ARTHRITIS
     Dosage: UNK UNK, QWK
     Route: 065

REACTIONS (7)
  - Infection [Unknown]
  - Diabetes mellitus [Unknown]
  - Pyrexia [Unknown]
  - Death [Fatal]
  - Musculoskeletal stiffness [Unknown]
  - Cold sweat [Unknown]
  - Vomiting [Unknown]

NARRATIVE: CASE EVENT DATE: 20160515
